FAERS Safety Report 4467371-1 (Version None)
Quarter: 2004Q4

REPORT INFORMATION
  Report Type: 
  Country: None (occurrence: None)
  Receive Date: 20041004
  Receipt Date: 20040920
  Transmission Date: 20050328
  Serious: Yes (Hospitalization)
  Sender: FDA-Public Use
  Company Number: 177038

PATIENT
  Age: 45 Year
  Sex: Female

DRUGS (9)
  1. AVONEX [Suspect]
     Indication: MULTIPLE SCLEROSIS
     Dosage: 30 MCG QW IM
     Route: 030
  2. PERCOCET [Concomitant]
  3. SYNTHROID [Concomitant]
  4. PROZAC [Concomitant]
  5. DYAZIDE [Concomitant]
  6. ZANAFLEX [Concomitant]
  7. PRIMROSE [Concomitant]
  8. MULTI-VITAMINS [Concomitant]
  9. VERELAN [Concomitant]

REACTIONS (3)
  - ENDOMETRIOSIS [None]
  - POSTOPERATIVE ADHESION [None]
  - POSTOPERATIVE INFECTION [None]
